FAERS Safety Report 5028551-X (Version None)
Quarter: 2006Q2

REPORT INFORMATION
  Report Type: 
  Country: None (occurrence: None)
  Receive Date: 20060615
  Receipt Date: 20060615
  Transmission Date: 20061013
  Serious: Yes (Other)
  Sender: FDA-Public Use
  Company Number: None

PATIENT
  Sex: Female
  Weight: 68.0396 kg

DRUGS (1)
  1. COMPOUND W FREEZE OFF WART REMOVAL [Suspect]
     Indication: BURNS SECOND DEGREE
     Dosage: 1 TIME 1 TIME
     Dates: start: 20060512

REACTIONS (5)
  - DIFFICULTY IN WALKING [None]
  - IMPAIRED WORK ABILITY [None]
  - PAIN IN EXTREMITY [None]
  - SKIN BURNING SENSATION [None]
  - WOUND [None]
